FAERS Safety Report 4787645-4 (Version None)
Quarter: 2005Q4

REPORT INFORMATION
  Report Type: 
  Country: None (occurrence: None)
  Receive Date: 20051004
  Receipt Date: 20050926
  Transmission Date: 20060501
  Serious: Yes (Hospitalization)
  Sender: FDA-Public Use
  Company Number: FR-ABBOTT-05P-056-0311987-00

PATIENT
  Age: 56 Year
  Sex: Male

DRUGS (4)
  1. NORVIR [Suspect]
     Indication: ACQUIRED IMMUNODEFICIENCY SYNDROME
     Route: 048
     Dates: start: 20050113, end: 20050821
  2. ATAZANAVIR [Suspect]
     Indication: ACQUIRED IMMUNODEFICIENCY SYNDROME
     Route: 048
     Dates: start: 20050113, end: 20050821
  3. TENOFOVIR [Concomitant]
     Indication: ACQUIRED IMMUNODEFICIENCY SYNDROME
     Route: 048
  4. DIDANOSINE [Concomitant]
     Indication: ACQUIRED IMMUNODEFICIENCY SYNDROME
     Route: 048

REACTIONS (7)
  - ABDOMINAL PAIN [None]
  - ANOREXIA [None]
  - BLOOD BILIRUBIN UNCONJUGATED INCREASED [None]
  - GENERAL PHYSICAL HEALTH DETERIORATION [None]
  - JAUNDICE [None]
  - NAUSEA [None]
  - WEIGHT DECREASED [None]
